FAERS Safety Report 6060874-8 (Version None)
Quarter: 2009Q1

REPORT INFORMATION
  Report Type: 
  Country: None (occurrence: None)
  Receive Date: 20090130
  Receipt Date: 20090130
  Transmission Date: 20090719
  Serious: Yes (Other)
  Sender: FDA-Public Use
  Company Number: None

PATIENT
  Sex: Female
  Weight: 20.4119 kg

DRUGS (3)
  1. LAMOTRIGINE [Suspect]
     Indication: CONVULSION
     Dosage: 5MG DAILY ORAL 047
     Route: 048
     Dates: start: 20081220, end: 20081226
  2. LAMOTRIGINE [Suspect]
     Indication: EPILEPSY
     Dosage: 5MG DAILY ORAL 047
     Route: 048
     Dates: start: 20081220, end: 20081226
  3. SULFATRIM SUSPENSION [Concomitant]

REACTIONS (3)
  - EYE MOVEMENT DISORDER [None]
  - FALL [None]
  - VISUAL IMPAIRMENT [None]
